FAERS Safety Report 9838042 (Version 1)
Quarter: 2013Q4

REPORT INFORMATION
  Report Type: Spontaneous
  Country: US (occurrence: None)
  Receive Date: 20131205
  Receipt Date: 20131205
  Transmission Date: 20140711
  Serious: No
  Sender: FDA-Public Use
  Company Number: 163-POMAL-13111721

PATIENT
  Age: 67 Year
  Sex: Male

DRUGS (9)
  1. POMALYST (POMALIDOMIDE) [Suspect]
     Indication: PLASMA CELL MYELOMA
     Dates: start: 201304
  2. METFORMIN(METFORMIN) [Concomitant]
  3. ACYCLOVIR(ACICLOVEIR) [Concomitant]
  4. JANUVIA(SITGLIPTIN PHOSPHATE) [Concomitant]
  5. ALLOPURINOL(ALLOPURINOL) [Concomitant]
  6. CYTOXAN(CYCLOPHOSPHAMIDE) [Concomitant]
  7. BABY ASPIRIN(ACETYLSALICYLIC ACID) [Concomitant]
  8. COENZYME Q10(UBIDECARENONE) [Concomitant]
  9. MVI(MVI) [Concomitant]

REACTIONS (1)
  - Drug intolerance [None]
